FAERS Safety Report 5924004-2 (Version None)
Quarter: 2008Q4

REPORT INFORMATION
  Report Type: 
  Country: None (occurrence: None)
  Receive Date: 20081020
  Receipt Date: 20081009
  Transmission Date: 20090506
  Serious: Yes (Other)
  Sender: FDA-Public Use
  Company Number: PHHY2008JP23373

PATIENT
  Age: 18 Year
  Sex: Male

DRUGS (8)
  1. CYCLOSPORINE [Suspect]
     Indication: STEM CELL TRANSPLANT
  2. CYCLOSPORINE [Suspect]
     Indication: PROPHYLAXIS AGAINST GRAFT VERSUS HOST DISEASE
  3. METHOTREXATE [Concomitant]
     Indication: STEM CELL TRANSPLANT
     Dosage: UNK
  4. METHOTREXATE [Concomitant]
     Indication: PROPHYLAXIS AGAINST GRAFT VERSUS HOST DISEASE
  5. CYCLOPHOSPHAMIDE [Concomitant]
     Indication: STEM CELL TRANSPLANT
  6. METHYLPREDNISOLONE 16MG TAB [Concomitant]
     Indication: GRAFT VERSUS HOST DISEASE
     Dosage: 2 MG/KG, UNK
  7. TACROLIMUS [Concomitant]
  8. MYCOPHENOLATE MOFETIL [Concomitant]

REACTIONS (5)
  - ACUTE GRAFT VERSUS HOST DISEASE IN SKIN [None]
  - GRAFT VERSUS HOST DISEASE [None]
  - JAUNDICE [None]
  - PAIN IN EXTREMITY [None]
  - POST TRANSPLANT DISTAL LIMB SYNDROME [None]
